FAERS Safety Report 22382365 (Version 2)
Quarter: 2023Q2

REPORT INFORMATION
  Report Type: Report from Study
  Country: US (occurrence: US)
  Receive Date: 20230530
  Receipt Date: 20230608
  Transmission Date: 20230722
  Serious: Yes (Hospitalization)
  Sender: FDA-Public Use
  Company Number: US-ALNYLAM PHARMACEUTICALS, INC.-ALN-2023-002443

PATIENT

DRUGS (2)
  1. AMVUTTRA [Suspect]
     Active Substance: VUTRISIRAN
     Indication: Hereditary neuropathic amyloidosis
     Dosage: 25 MILLIGRAM, Q3M
     Route: 058
     Dates: start: 20221117
  2. AMVUTTRA [Suspect]
     Active Substance: VUTRISIRAN
     Dosage: 25 MILLIGRAM, Q3M
     Route: 058

REACTIONS (8)
  - Heart rate decreased [Unknown]
  - Blood potassium abnormal [Unknown]
  - Tremor [Unknown]
  - Arthralgia [Unknown]
  - Dysstasia [Unknown]
  - Asthenia [Unknown]
  - Therapy interrupted [Unknown]
  - Product distribution issue [Unknown]
